FAERS Safety Report 19758981 (Version 1)
Quarter: 2021Q3

REPORT INFORMATION
  Report Type: Spontaneous
  Country: PS (occurrence: PS)
  Receive Date: 20210829
  Receipt Date: 20210829
  Transmission Date: 20211014
  Serious: Yes (Life-Threatening, Hospitalization, Other)
  Sender: FDA-Public Use
  Company Number: PS-LUPIN PHARMACEUTICALS INC.-2021-15811

PATIENT
  Age: 5 Year
  Sex: Male
  Weight: 18 kg

DRUGS (2)
  1. VALPROIC ACID. [Concomitant]
     Active Substance: VALPROIC ACID
     Indication: DROP ATTACKS
     Dosage: UNK
     Route: 065
  2. LAMOTRIGINE. [Suspect]
     Active Substance: LAMOTRIGINE
     Indication: DROP ATTACKS
     Dosage: UNK
     Route: 065

REACTIONS (2)
  - Staphylococcal infection [Recovered/Resolved]
  - Toxic epidermal necrolysis [Recovered/Resolved]
